FAERS Safety Report 19775293 (Version 1)
Quarter: 2021Q3

REPORT INFORMATION
  Report Type: Spontaneous
  Country: NL (occurrence: NL)
  Receive Date: 20210901
  Receipt Date: 20210901
  Transmission Date: 20211014
  Serious: Yes (Hospitalization)
  Sender: FDA-Public Use
  Company Number: NL-MYLANLABS-2021M1056662

PATIENT
  Age: 34 Year
  Sex: Female
  Weight: 56.6 kg

DRUGS (6)
  1. DEXAMETHASON                       /00016001/ [Concomitant]
     Active Substance: DEXAMETHASONE
     Dosage: UNK (TABLET 1 DAY 4 MG)
  2. PARACETAMOL [Concomitant]
     Active Substance: ACETAMINOPHEN
     Dosage: CAPSULE, 500 MG (MILLIGRAM)
  3. DUROGESIC [Concomitant]
     Active Substance: FENTANYL
     Dosage: PLASTER, 12 ?G (MICROGRAMS) PER HOUR
  4. METOCLOPRAMIDE. [Concomitant]
     Active Substance: METOCLOPRAMIDE
     Dosage: UNK (10MG TABLET 3 TIMES)
  5. CISPLATIN. [Suspect]
     Active Substance: CISPLATIN
     Indication: CHOLANGIOCARCINOMA
     Dosage: INFUSION, 1 MG/MG (MILLIGRAMS PER MILLIGRAM)
     Route: 065
     Dates: start: 20210309, end: 20210309
  6. MOVICOLON [Concomitant]
     Active Substance: POLYETHYLENE GLYCOL 3350\POTASSIUM CHLORIDE\SODIUM BICARBONATE\SODIUM CHLORIDE
     Dosage: POWDER FOR DRINK

REACTIONS (1)
  - Renal tubular acidosis [Not Recovered/Not Resolved]

NARRATIVE: CASE EVENT DATE: 20210315
